FAERS Safety Report 25747817 (Version 2)
Quarter: 2025Q3

REPORT INFORMATION
  Report Type: Spontaneous
  Country: MW (occurrence: MW)
  Receive Date: 20250901
  Receipt Date: 20250920
  Transmission Date: 20251020
  Serious: Yes (Death, Hospitalization, Other)
  Sender: NOVARTIS
  Company Number: MW-002147023-NVSC2025MW134394

PATIENT
  Age: 30 Year
  Sex: Male
  Weight: 56 kg

DRUGS (3)
  1. GLIVEC [Suspect]
     Active Substance: IMATINIB MESYLATE
     Indication: Chronic myeloid leukaemia
     Dosage: 400 MG  (4 X 100MG)
     Route: 048
  2. GLIVEC [Suspect]
     Active Substance: IMATINIB MESYLATE
     Dosage: 400 MG, QD
     Route: 048
     Dates: start: 20250731, end: 20250805
  3. GLIVEC [Suspect]
     Active Substance: IMATINIB MESYLATE
     Dosage: 400 MG, QD
     Route: 048
     Dates: start: 20250820, end: 20250825

REACTIONS (5)
  - Illness [Fatal]
  - Haematotoxicity [Fatal]
  - Neutropenic sepsis [Fatal]
  - Malignant neoplasm progression [Unknown]
  - Chronic myeloid leukaemia [Unknown]

NARRATIVE: CASE EVENT DATE: 20250804
